FAERS Safety Report 21524176 (Version 4)
Quarter: 2022Q4

REPORT INFORMATION
  Report Type: Report from Study
  Country: US (occurrence: US)
  Receive Date: 20221029
  Receipt Date: 20221110
  Transmission Date: 20230112
  Serious: No
  Sender: FDA-Public Use
  Company Number: US-NOVARTISTESTPH-NVSC2022US243787

PATIENT
  Age: 41 Year
  Sex: Female

DRUGS (6)
  1. MAYZENT [Suspect]
     Active Substance: SIPONIMOD
     Indication: Multiple sclerosis relapse
     Dosage: 2 MG, QD
     Route: 048
  2. MAYZENT [Suspect]
     Active Substance: SIPONIMOD
     Indication: Clinically isolated syndrome
     Dosage: 0.25 MG, DAY 1
     Route: 048
  3. MAYZENT [Suspect]
     Active Substance: SIPONIMOD
     Indication: Relapsing-remitting multiple sclerosis
     Dosage: 0.25 MG, DAY 2, NO TABLET FOR DAY 2 OF MEDICATION PACKET
     Route: 048
  4. MAYZENT [Suspect]
     Active Substance: SIPONIMOD
     Indication: Secondary progressive multiple sclerosis
     Dosage: 0.5 MG, DAY 3
     Route: 048
  5. MAYZENT [Suspect]
     Active Substance: SIPONIMOD
     Dosage: 0.75 MG, DAY 4
     Route: 048
  6. MAYZENT [Suspect]
     Active Substance: SIPONIMOD
     Dosage: 1 MG, MAINTENANCE DOSE
     Route: 048
     Dates: start: 20221102

REACTIONS (2)
  - Asthenia [Recovering/Resolving]
  - Product packaging quantity issue [Unknown]

NARRATIVE: CASE EVENT DATE: 20221103
